FAERS Safety Report 8447395-X (Version None)
Quarter: 2012Q2

REPORT INFORMATION
  Report Type: 
  Country: None (occurrence: None)
  Receive Date: 20120619
  Receipt Date: 20120613
  Transmission Date: 20120825
  Serious: Yes (Death, Life-Threatening, Hospitalization)
  Sender: FDA-Public Use
  Company Number: JP-PFIZER INC-2012143169

PATIENT
  Age: 79 Year
  Sex: Male
  Weight: 69 kg

DRUGS (32)
  1. SUNITINIB MALATE [Suspect]
     Dosage: 25 MG, 1X/DAY
     Route: 048
     Dates: start: 20090105, end: 20090109
  2. SUNITINIB MALATE [Suspect]
     Dosage: 25 MG, 1X/DAY
     Route: 048
     Dates: start: 20090527, end: 20090622
  3. SUNITINIB MALATE [Suspect]
     Dosage: 25 MG, 1X/DAY
     Route: 048
     Dates: start: 20081130, end: 20081221
  4. SUNITINIB MALATE [Suspect]
     Dosage: 25 MG, 1X/DAY
     Route: 048
     Dates: start: 20090819, end: 20090829
  5. SUNITINIB MALATE [Suspect]
     Dosage: 25 MG, 1X/DAY
     Route: 048
     Dates: start: 20091018, end: 20091023
  6. SUNITINIB MALATE [Suspect]
     Dosage: 25 MG, 1X/DAY
     Route: 048
     Dates: start: 20100114, end: 20100127
  7. SUNITINIB MALATE [Suspect]
     Dosage: 25 MG, 1X/DAY
     Route: 048
     Dates: start: 20100506, end: 20100509
  8. DIOVAN [Concomitant]
     Dosage: 80 MG, 1X/DAY
     Route: 048
     Dates: end: 20100121
  9. MARZULENE S [Concomitant]
     Dosage: 1.5 G, 3X/DAY
     Route: 048
     Dates: start: 20080807, end: 20100417
  10. SUNITINIB MALATE [Suspect]
     Dosage: 25 MG, 1X/DAY
     Route: 048
     Dates: start: 20080811, end: 20080907
  11. SUNITINIB MALATE [Suspect]
     Dosage: 25 MG, 1X/DAY
     Route: 048
     Dates: start: 20090216, end: 20090314
  12. SUNITINIB MALATE [Suspect]
     Dosage: 25 MG, 1X/DAY
     Route: 048
     Dates: start: 20090330, end: 20090426
  13. LEVOTHYROXINE SODIUM [Concomitant]
     Dosage: 50 UG, 1X/DAY
     Route: 048
     Dates: start: 20090630, end: 20100523
  14. SUNITINIB MALATE [Suspect]
     Dosage: 25 MG, 1X/DAY
     Route: 048
     Dates: start: 20080922, end: 20080928
  15. SUNITINIB MALATE [Suspect]
     Dosage: 25 MG, 1X/DAY
     Route: 048
     Dates: start: 20081028, end: 20081127
  16. SUNITINIB MALATE [Suspect]
     Dosage: 25 MG, 1X/DAY
     Route: 048
     Dates: start: 20090113, end: 20090123
  17. SUNITINIB MALATE [Suspect]
     Dosage: 25 MG, 1X/DAY
     Route: 048
     Dates: start: 20091007, end: 20091014
  18. SUNITINIB MALATE [Suspect]
     Dosage: 25 MG, 1X/DAY
     Route: 048
     Dates: start: 20091027, end: 20091104
  19. SUNITINIB MALATE [Suspect]
     Dosage: 25 MG, 1X/DAY
     Route: 048
     Dates: start: 20091130, end: 20091211
  20. LANSOPRAZOLE [Concomitant]
     Dosage: 15 MG, 1X/DAY
     Route: 048
     Dates: start: 20080807, end: 20100518
  21. SUNITINIB MALATE [Suspect]
     Dosage: 25 MG, 1X/DAY
     Route: 048
     Dates: start: 20090724, end: 20090803
  22. SUNITINIB MALATE [Suspect]
     Dosage: 25 MG, 1X/DAY
     Route: 048
     Dates: start: 20091119, end: 20091125
  23. SUNITINIB MALATE [Suspect]
     Dosage: 25 MG, 1X/DAY
     Route: 048
     Dates: start: 20100212, end: 20100227
  24. SUNITINIB MALATE [Suspect]
     Dosage: 25 MG, 1X/DAY
     Route: 048
     Dates: start: 20100303, end: 20100311
  25. SUNITINIB MALATE [Suspect]
     Indication: METASTATIC RENAL CELL CARCINOMA
     Dosage: 25 MG, 1X/DAY
     Route: 048
     Dates: start: 20080722, end: 20080807
  26. SUNITINIB MALATE [Suspect]
     Dosage: 25 MG, 1X/DAY
     Route: 048
     Dates: start: 20090706, end: 20090722
  27. SUNITINIB MALATE [Suspect]
     Dosage: 25 MG, 1X/DAY
     Route: 048
     Dates: start: 20091230, end: 20100109
  28. SUNITINIB MALATE [Suspect]
     Dosage: 25 MG, 1X/DAY
     Route: 048
     Dates: start: 20100406, end: 20100421
  29. SUNITINIB MALATE [Suspect]
     Dosage: 25 MG, 1X/DAY
     Route: 048
     Dates: start: 20090128, end: 20090201
  30. SUNITINIB MALATE [Suspect]
     Dosage: 25 MG, 1X/DAY
     Route: 048
     Dates: start: 20090901, end: 20090914
  31. SUNITINIB MALATE [Suspect]
     Dosage: 25 MG, 1X/DAY
     Route: 048
     Dates: start: 20091215, end: 20091216
  32. SUNITINIB MALATE [Suspect]
     Dosage: 25 MG, 1X/DAY
     Route: 048
     Dates: start: 20100325, end: 20100331

REACTIONS (3)
  - PLEURAL EFFUSION [None]
  - DYSPNOEA [None]
  - DEATH [None]
